FAERS Safety Report 14273749 (Version 1)
Quarter: 2017Q4

REPORT INFORMATION
  Report Type: Spontaneous
  Country: US (occurrence: None)
  Receive Date: 20171212
  Receipt Date: 20171212
  Transmission Date: 20180321
  Serious: Yes (Life-Threatening, Disabling)
  Sender: FDA-Public Use
  Company Number: None

PATIENT
  Sex: Female
  Weight: 106.59 kg

DRUGS (4)
  1. THORAZINE [Concomitant]
     Active Substance: CHLORPROMAZINE
  2. DEPAKOTE [Concomitant]
     Active Substance: DIVALPROEX SODIUM
  3. HALOPERIDOL DEC 100MG INJ [Suspect]
     Active Substance: HALOPERIDOL
     Indication: DRUG THERAPY
     Dates: start: 20170602
  4. HALDOL [Concomitant]
     Active Substance: HALOPERIDOL

REACTIONS (1)
  - Blindness unilateral [None]
